FAERS Safety Report 6872490-6 (Version None)
Quarter: 2010Q3

REPORT INFORMATION
  Report Type: 
  Country: None (occurrence: None)
  Receive Date: 20100723
  Receipt Date: 20081003
  Transmission Date: 20110219
  Serious: No
  Sender: FDA-Public Use
  Company Number: US-PFIZER INC-2008084277

PATIENT
  Sex: Female
  Weight: 59.1 kg

DRUGS (12)
  1. CHANTIX [Suspect]
     Indication: SMOKING CESSATION THERAPY
     Dates: start: 20080930, end: 20080930
  2. ZIPRASIDONE HCL [Concomitant]
  3. HYDROCODONE BITARTRATE [Concomitant]
  4. ULTRAM [Concomitant]
  5. DICLOFENAC DIETHYLAMINE [Concomitant]
  6. KLONOPIN [Concomitant]
  7. CELECOXIB [Concomitant]
  8. CYMBALTA [Concomitant]
  9. NEXIUM [Concomitant]
  10. AMBIEN [Concomitant]
  11. TOPAMAX [Concomitant]
  12. SYNTHROID [Concomitant]

REACTIONS (4)
  - ABNORMAL DREAMS [None]
  - CRYING [None]
  - NIGHTMARE [None]
  - SLEEP DISORDER [None]
